FAERS Safety Report 17749671 (Version 2)
Quarter: 2020Q2

REPORT INFORMATION
  Report Type: Spontaneous
  Country: GR (occurrence: GR)
  Receive Date: 20200506
  Receipt Date: 20200523
  Transmission Date: 20200714
  Serious: Yes (Death, Life-Threatening, Hospitalization, Other)
  Sender: FDA-Public Use
  Company Number: GR-ACCORD-180698

PATIENT
  Age: 5 Year
  Sex: Male

DRUGS (6)
  1. THIOTEPA. [Suspect]
     Active Substance: THIOTEPA
     Indication: BONE MARROW CONDITIONING REGIMEN
  2. ANTITHYMOCYTE IMMUNOGLOBULIN [Suspect]
     Active Substance: THYMOCYTE IMMUNE GLOBULIN NOS
     Indication: GRAFT VERSUS HOST DISEASE
     Dosage: ON DAY 1
  3. BUSULFAN. [Suspect]
     Active Substance: BUSULFAN
     Indication: BONE MARROW CONDITIONING REGIMEN
  4. METHOTREXATE. [Suspect]
     Active Substance: METHOTREXATE
     Indication: GRAFT VERSUS HOST DISEASE
     Dosage: DAY 6
  5. FLUDARABINE [Suspect]
     Active Substance: FLUDARABINE PHOSPHATE
     Indication: BONE MARROW CONDITIONING REGIMEN
  6. CICLOSPORIN [Suspect]
     Active Substance: CYCLOSPORINE
     Indication: GRAFT VERSUS HOST DISEASE
     Dosage: DAY 3

REACTIONS (11)
  - Cerebral calcification [Unknown]
  - Mucosal inflammation [Recovered/Resolved]
  - Cerebral toxoplasmosis [Fatal]
  - Acute respiratory distress syndrome [Not Recovered/Not Resolved]
  - BK virus infection [Unknown]
  - Cystitis viral [Unknown]
  - Dysuria [Unknown]
  - Respiratory failure [Fatal]
  - Disseminated toxoplasmosis [Fatal]
  - Febrile neutropenia [Recovered/Resolved]
  - Toxoplasmosis [Fatal]
